FAERS Safety Report 9601603 (Version 3)
Quarter: 2014Q4

REPORT INFORMATION
  Report Type: Report from Study
  Country: JP (occurrence: JP)
  Receive Date: 20131007
  Receipt Date: 20141114
  Transmission Date: 20150529
  Serious: Yes (Hospitalization)
  Sender: FDA-Public Use
  Company Number: JP-ACTELION-A-CH2013-89493

PATIENT
  Age: 17 Year
  Sex: Male

DRUGS (18)
  1. ZAVESCA [Suspect]
     Active Substance: MIGLUSTAT
     Dosage: 100 MG, BID
     Route: 048
     Dates: start: 20120804, end: 20120805
  2. ZAVESCA [Suspect]
     Active Substance: MIGLUSTAT
     Dosage: 200 MG, BID
     Route: 048
     Dates: start: 20121006, end: 20130109
  3. ZAVESCA [Suspect]
     Active Substance: MIGLUSTAT
     Dosage: 100 MG, OD
     Route: 048
     Dates: start: 20140118, end: 20140228
  4. ZAVESCA [Suspect]
     Active Substance: MIGLUSTAT
     Dosage: 100 MG, TID
     Route: 048
     Dates: start: 20120806, end: 20120905
  5. ZAVESCA [Suspect]
     Active Substance: MIGLUSTAT
     Dosage: 100 MG, TID
     Route: 048
     Dates: start: 20140315, end: 20140603
  6. ZAVESCA [Suspect]
     Active Substance: MIGLUSTAT
     Dosage: 400 MG, QD
     Route: 048
     Dates: start: 20140604, end: 20140901
  7. ZAVESCA [Suspect]
     Active Substance: MIGLUSTAT
     Dosage: 100 MG, TID
     Route: 048
     Dates: start: 20121005, end: 20121005
  8. ZAVESCA [Suspect]
     Active Substance: MIGLUSTAT
     Dosage: 100 MG, BID
     Route: 048
     Dates: start: 20140228, end: 20140315
  9. ZAVESCA [Suspect]
     Active Substance: MIGLUSTAT
     Indication: NIEMANN-PICK DISEASE
     Dosage: 100 MG, TID
     Route: 048
     Dates: start: 20130110, end: 20131227
  10. FEXOFENADINE HYDROCHLORIDE. [Concomitant]
     Active Substance: FEXOFENADINE HYDROCHLORIDE
  11. CEFTRIAXONE SODIUM. [Concomitant]
     Active Substance: CEFTRIAXONE SODIUM
  12. ZAVESCA [Suspect]
     Active Substance: MIGLUSTAT
     Dosage: 100 MG, OD
     Route: 048
     Dates: start: 20120802, end: 20120803
  13. ZAVESCA [Suspect]
     Active Substance: MIGLUSTAT
     Dosage: 500 MG, QD
     Route: 048
     Dates: start: 20120906, end: 20121001
  14. ZAVESCA [Suspect]
     Active Substance: MIGLUSTAT
     Dosage: 200 MG, TID
     Route: 048
     Dates: start: 20121002, end: 20121004
  15. BIFIDOBACTERIUM ANIMALIS [Concomitant]
  16. ZAVESCA [Suspect]
     Active Substance: MIGLUSTAT
     Dosage: 500 MG, QD
     Route: 048
     Dates: start: 20140902
  17. LYSOZYME HYDROCHLORIDE [Concomitant]
     Active Substance: LYSOZYME HYDROCHLORIDE
  18. SULTAMICILLIN TOSILATE [Concomitant]

REACTIONS (11)
  - Fall [Not Recovered/Not Resolved]
  - Cyanosis [Not Recovered/Not Resolved]
  - Epilepsy [Not Recovered/Not Resolved]
  - Generalised tonic-clonic seizure [Not Recovered/Not Resolved]
  - Enteritis infectious [Recovered/Resolved]
  - Pneumonia [Recovered/Resolved]
  - Vomiting [Unknown]
  - Nasopharyngitis [Recovered/Resolved]
  - Seizure [Not Recovered/Not Resolved]
  - Loss of consciousness [Not Recovered/Not Resolved]
  - Pneumonia aspiration [Unknown]

NARRATIVE: CASE EVENT DATE: 201308
